FAERS Safety Report 24638235 (Version 2)
Quarter: 2024Q4

REPORT INFORMATION
  Report Type: Spontaneous
  Country: US (occurrence: US)
  Receive Date: 20241119
  Receipt Date: 20241218
  Transmission Date: 20250114
  Serious: Yes (Other)
  Sender: TEVA
  Company Number: US-TEVA-VS-3265429

PATIENT
  Age: 82 Year

DRUGS (3)
  1. AMOXICILLIN [Suspect]
     Active Substance: AMOXICILLIN
     Indication: Antibiotic therapy
     Route: 048
  2. AMPICILLIN [Suspect]
     Active Substance: AMPICILLIN
     Indication: Antibiotic therapy
     Route: 065
  3. AZTREONAM [Concomitant]
     Active Substance: AZTREONAM
     Indication: Antibiotic therapy
     Route: 065

REACTIONS (4)
  - Anaphylactic reaction [Unknown]
  - Hypotension [Unknown]
  - Tachycardia [Unknown]
  - Flushing [Unknown]
